FAERS Safety Report 18011433 (Version 2)
Quarter: 2020Q3

REPORT INFORMATION
  Report Type: Spontaneous
  Country: NO (occurrence: NO)
  Receive Date: 20200712
  Receipt Date: 20200826
  Transmission Date: 20201103
  Serious: Yes (Death, Hospitalization)
  Sender: FDA-Public Use
  Company Number: NO-009507513-2007NOR003698

PATIENT
  Age: 65 Year
  Sex: Female
  Weight: 95 kg

DRUGS (7)
  1. ZYRTEC [Concomitant]
     Active Substance: CETIRIZINE HYDROCHLORIDE
     Indication: HYPERSENSITIVITY
     Dosage: 10 MILLIGRAM, ONCE DAILY
     Route: 048
  2. HYDROXOCOBALAMIN [Concomitant]
     Active Substance: HYDROXOCOBALAMIN
     Indication: PREMEDICATION
     Dosage: 1 DOSAGE FORM, EVERY 9 WEEKS
     Route: 030
  3. PEMBROLIZUMAB. [Suspect]
     Active Substance: PEMBROLIZUMAB
     Indication: LUNG CANCER METASTATIC
     Dosage: 200 MG EVERY 3RD TO 4TH WEEK.
     Route: 041
     Dates: start: 20191004, end: 20200625
  4. DEXAMETASON [Concomitant]
     Active Substance: DEXAMETHASONE
     Indication: NAUSEA
     Dosage: 4 MILLIGRAM, Q12H; FOR 3 DAYS WITHIN EVERY COURSE OF THERAPY.
     Route: 048
  5. ZOFRAN [Concomitant]
     Active Substance: ONDANSETRON HYDROCHLORIDE
     Indication: NAUSEA
     Dosage: 8 MILLIGRAM, Q12H AS NEEDED
  6. NYCOPLUS FOLSYRE [Concomitant]
     Indication: PREMEDICATION
     Dosage: 4 MILLIGRAM, ONCE DAILY
     Route: 048
  7. PEMETREXED DISODIUM [Concomitant]
     Active Substance: PEMETREXED DISODIUM
     Indication: LUNG NEOPLASM MALIGNANT
     Dosage: 800 MG EVERY 3RD ? 4TH WEEK.
     Route: 041
     Dates: start: 20191004, end: 20200625

REACTIONS (2)
  - Coma hepatic [Fatal]
  - Immune-mediated hepatitis [Fatal]

NARRATIVE: CASE EVENT DATE: 20200628
